FAERS Safety Report 4445694-X (Version None)
Quarter: 2004Q3

REPORT INFORMATION
  Report Type: 
  Country: None (occurrence: None)
  Receive Date: 20040902
  Receipt Date: 20040820
  Transmission Date: 20050211
  Serious: Yes (Hospitalization)
  Sender: FDA-Public Use
  Company Number: 24928

PATIENT
  Age: 70 Year
  Sex: Male

DRUGS (2)
  1. FLECAINIDE ACETATE [Suspect]
     Indication: ATRIAL FIBRILLATION
     Dosage: 200 MG, ORAL
     Route: 048
     Dates: start: 20030701
  2. SOPROL (BISOPROLOL FUMARATE) [Concomitant]

REACTIONS (3)
  - ANGINA PECTORIS [None]
  - ATRIAL FLUTTER [None]
  - LOW CARDIAC OUTPUT SYNDROME [None]
